FAERS Safety Report 26068786 (Version 1)
Quarter: 2025Q4

REPORT INFORMATION
  Report Type: Spontaneous
  Country: EU (occurrence: EU)
  Receive Date: 20251120
  Receipt Date: 20251120
  Transmission Date: 20260117
  Serious: Yes (Other)
  Sender: AUROBINDO
  Company Number: EU-EMB-M202406174-1

PATIENT
  Sex: Female

DRUGS (10)
  1. PREDNISOLONE [Suspect]
     Active Substance: PREDNISOLONE
     Indication: Crohn^s disease
     Dosage: UNK UNK, ONCE A DAY (CONTRADICTORY INFORMATION FROM THE PATIENT REGARDING THE PERIODS OF USE:APPLIED TWICE DURING THE PERIOD FROM GW 12 TO GW 22, PULSE THERAPY WITH MAXIMUM DOSES OF UP TO 60 MG/DAY, REDUCED IN 10 MG STEPS.)
     Dates: start: 202407
  2. PREDNISOLONE [Suspect]
     Active Substance: PREDNISOLONE
     Indication: Crohn^s disease
  3. PROGESTERONE [Suspect]
     Active Substance: PROGESTERONE
     Indication: Prophylaxis of abortion
     Dosage: 300 MILLIGRAM
     Dates: start: 202404, end: 202407
  4. AZATHIOPRINE [Suspect]
     Active Substance: AZATHIOPRINE
     Indication: Crohn^s disease
     Dosage: 150 MILLIGRAM, ONCE A DAY (IMPRECISE DATES)
     Dates: start: 202407, end: 202409
  5. AZATHIOPRINE [Suspect]
     Active Substance: AZATHIOPRINE
     Indication: Crohn^s disease
  6. HUMIRA [Suspect]
     Active Substance: ADALIMUMAB
     Indication: Crohn^s disease
     Dosage: 40 MILLIGRAM (BIWEEKLY)
  7. HUMIRA [Suspect]
     Active Substance: ADALIMUMAB
     Indication: Crohn^s disease
  8. ACYCLOVIR [Concomitant]
     Active Substance: ACYCLOVIR
     Indication: Genital herpes
     Dosage: 1200 MILLIGRAM (UP TO 1200 MG/D AS NEEDED (NO DETAILS KNOWN))
  9. BUDESONIDE [Concomitant]
     Active Substance: BUDESONIDE
     Indication: Crohn^s disease
     Dosage: 9 MILLIGRAM, ONCE A DAY (POSSIBLY LONGER)
     Dates: start: 202406
  10. BUDESONIDE [Concomitant]
     Active Substance: BUDESONIDE
     Indication: Crohn^s disease

REACTIONS (2)
  - Cardiac septal hypertrophy [Recovered/Resolved]
  - Foetal exposure during pregnancy [Unknown]

NARRATIVE: CASE EVENT DATE: 20250201
